FAERS Safety Report 8273132-8 (Version None)
Quarter: 2012Q2

REPORT INFORMATION
  Report Type: 
  Country: None (occurrence: None)
  Receive Date: 20120411
  Receipt Date: 20120403
  Transmission Date: 20120825
  Serious: Yes (Other)
  Sender: FDA-Public Use
  Company Number: US-US-EMD SERONO, INC.-7120938

PATIENT
  Sex: Male
  Weight: 91 kg

DRUGS (2)
  1. TRUVADA BOOSTED WITH REYATAZ [Concomitant]
     Indication: PRODUCT USED FOR UNKNOWN INDICATION
  2. EGRIFTA [Suspect]
     Indication: LIPODYSTROPHY ACQUIRED
     Route: 058
     Dates: start: 20110601

REACTIONS (1)
  - DIABETES MELLITUS [None]
